FAERS Safety Report 4335148-3 (Version None)
Quarter: 2004Q2

REPORT INFORMATION
  Report Type: 
  Country: None (occurrence: None)
  Receive Date: 20040402
  Receipt Date: 20040212
  Transmission Date: 20050107
  Serious: Yes (Hospitalization)
  Sender: FDA-Public Use
  Company Number: 234610

PATIENT
  Age: 17 Year
  Sex: Female
  Weight: 76.2 kg

DRUGS (1)
  1. NOVOLOG [Suspect]
     Indication: DIABETES MELLITUS INSULIN-DEPENDENT
     Dosage: 78 IU BASAL QD, + IU/15 G CARB; SUBCUTANEOUS
     Route: 058
     Dates: start: 20031201, end: 20040101

REACTIONS (1)
  - DIABETIC KETOACIDOSIS [None]
